FAERS Safety Report 4686064-9 (Version None)
Quarter: 2005Q2

REPORT INFORMATION
  Report Type: 
  Country: None (occurrence: None)
  Receive Date: 20050609
  Receipt Date: 20050506
  Transmission Date: 20051028
  Serious: Yes (Death)
  Sender: FDA-Public Use
  Company Number: PHHO2005ES07277

PATIENT
  Age: 70 Year
  Sex: Female

DRUGS (1)
  1. NEORAL [Suspect]
     Dosage: 125MG DAILY
     Dates: start: 20020729

REACTIONS (1)
  - CEREBRAL HAEMORRHAGE [None]
